FAERS Safety Report 16843625 (Version 2)
Quarter: 2019Q3

REPORT INFORMATION
  Report Type: Spontaneous
  Country: US (occurrence: US)
  Receive Date: 20190924
  Receipt Date: 20190927
  Transmission Date: 20191005
  Serious: Yes (Other)
  Sender: FDA-Public Use
  Company Number: US-CIPLA LTD.-2019US06474

PATIENT

DRUGS (5)
  1. GABAPENTIN. [Suspect]
     Active Substance: GABAPENTIN
     Dosage: 11 DOSAGE FORM (STRENGTH 300 MG, 2 CAPSULES BY MOUTH 5 TIMES A DAY AND ONE AT BEDTIME)
     Route: 048
     Dates: start: 20190911
  2. GABAPENTIN. [Suspect]
     Active Substance: GABAPENTIN
     Indication: CENTRAL CORD SYNDROME
     Dosage: UNK (UNKNOWN STRENGTH)
     Route: 048
  3. GABAPENTIN. [Suspect]
     Active Substance: GABAPENTIN
     Dosage: 12 DOSAGE FORM (STRENGTH 300 MG, TWO CAPSULES 6 TIMES A DAY)
     Route: 048
     Dates: start: 20190912
  4. SIMVASTATIN. [Concomitant]
     Active Substance: SIMVASTATIN
     Indication: HYPERTENSION
     Dosage: 5 MILLIGRAM, QD AT NIGHT
     Route: 065
  5. GABAPENTIN. [Suspect]
     Active Substance: GABAPENTIN
     Dosage: 300 MILLIGRAM, PRN (SOMETIMES 3 CAPSULES, SOMETIMES 7, SOMETIMES 11)
     Route: 048

REACTIONS (10)
  - Drug ineffective for unapproved indication [Unknown]
  - Off label use [Unknown]
  - Musculoskeletal stiffness [Not Recovered/Not Resolved]
  - Extra dose administered [Unknown]
  - Pain [Not Recovered/Not Resolved]
  - Limb discomfort [Not Recovered/Not Resolved]
  - Product substitution issue [Unknown]
  - Product dose omission [Unknown]
  - Burning sensation [Not Recovered/Not Resolved]
  - Unevaluable event [Not Recovered/Not Resolved]
